FAERS Safety Report 25423032 (Version 2)
Quarter: 2025Q3

REPORT INFORMATION
  Report Type: Spontaneous
  Country: US (occurrence: US)
  Receive Date: 20250611
  Receipt Date: 20250812
  Transmission Date: 20251021
  Serious: Yes (Hospitalization)
  Sender: PFIZER
  Company Number: US-PFIZER INC-202500116985

PATIENT
  Age: 66 Year
  Sex: Male
  Weight: 72.562 kg

DRUGS (1)
  1. VELSIPITY [Suspect]
     Active Substance: ETRASIMOD ARGININE
     Indication: Colitis ulcerative
     Dosage: 2 MG, DAILY
     Route: 048
     Dates: start: 20250304, end: 20250704

REACTIONS (4)
  - Drug ineffective [Unknown]
  - Faecal calprotectin increased [Unknown]
  - Inflammation [Unknown]
  - Pseudopolyp [Unknown]
